FAERS Safety Report 4590212-9 (Version None)
Quarter: 2005Q1

REPORT INFORMATION
  Report Type: 
  Country: None (occurrence: None)
  Receive Date: 20050224
  Receipt Date: 20050215
  Transmission Date: 20050727
  Serious: Yes (Hospitalization)
  Sender: FDA-Public Use
  Company Number: US-JNJFOC-20040204046

PATIENT
  Sex: Male

DRUGS (11)
  1. DURAGESIC-100 [Suspect]
     Route: 062
     Dates: start: 20040109, end: 20040214
  2. DURAGESIC-100 [Suspect]
     Route: 062
     Dates: start: 20040109, end: 20040214
  3. AMBIEN [Concomitant]
     Indication: SLEEP DISORDER THERAPY
  4. TOPROL-XL [Concomitant]
     Indication: HYPERTENSION
  5. GABAPENTIN [Concomitant]
  6. LISINOPRIL [Concomitant]
     Indication: HYPERTENSION
  7. LASIX [Concomitant]
  8. COMBIVENT [Concomitant]
     Route: 055
  9. COMBIVENT [Concomitant]
     Dosage: FOUR TIMES DAILY AS NEEDED
     Route: 055
  10. GUAIFENESIN [Concomitant]
  11. ALBUTEROL [Concomitant]
     Route: 055

REACTIONS (13)
  - AGITATION [None]
  - ASPARTATE AMINOTRANSFERASE INCREASED [None]
  - ATRIAL FIBRILLATION [None]
  - CEREBRAL ATROPHY [None]
  - DISORIENTATION [None]
  - DIZZINESS [None]
  - FALL [None]
  - HAEMATOCRIT DECREASED [None]
  - HAEMOGLOBIN DECREASED [None]
  - INSOMNIA [None]
  - MENTAL STATUS CHANGES [None]
  - RESTLESSNESS [None]
  - SCAR [None]
